FAERS Safety Report 10019906 (Version 2)
Quarter: 2014Q2

REPORT INFORMATION
  Report Type: Spontaneous
  Country: US (occurrence: US)
  Receive Date: 20140318
  Receipt Date: 20140618
  Transmission Date: 20141212
  Serious: No
  Sender: FDA-Public Use
  Company Number: US-GALDERMA-US14000387

PATIENT
  Sex: Female

DRUGS (5)
  1. MIRVASO (BRIMONIDINE) TOPICAL GEL, 0.33% [Suspect]
     Indication: ROSACEA
     Dosage: 0.33%
     Route: 061
     Dates: start: 20140126, end: 20140128
  2. TRILIPIX [Concomitant]
     Indication: BLOOD TRIGLYCERIDES
     Dosage: 45
     Route: 048
     Dates: start: 2010
  3. LISINOPRIL [Concomitant]
     Indication: HYPERTENSION
     Dosage: 20/12.5
     Route: 048
     Dates: start: 2008
  4. LEVOTHYROXINE [Concomitant]
     Indication: THYROID DISORDER
     Dosage: 25 MCG
     Route: 048
     Dates: start: 2012
  5. VITAMIN D [Concomitant]
     Dosage: 1000
     Dates: start: 2012

REACTIONS (3)
  - Rash papular [Recovered/Resolved]
  - Rash pruritic [Recovered/Resolved]
  - Erythema [Recovered/Resolved]
